FAERS Safety Report 10644023 (Version 1)
Quarter: 2014Q4

REPORT INFORMATION
  Report Type: Report from Study
  Country: US (occurrence: US)
  Receive Date: 20141210
  Receipt Date: 20141210
  Transmission Date: 20150529
  Serious: Yes (Other)
  Sender: FDA-Public Use
  Company Number: US-SA-2014SA167935

PATIENT
  Sex: Male

DRUGS (2)
  1. LANTUS [Suspect]
     Active Substance: INSULIN GLARGINE
     Indication: DIABETES MELLITUS
     Dosage: DOSE: 50 UNITS IN MORNING AND 30 UNITS AT NIGHT
     Route: 065
  2. APIDRA [Suspect]
     Active Substance: INSULIN GLULISINE
     Dosage: DOSE: 1 UNIT DOSE BASED ON NUMBER OF CARBS EATEN
     Route: 065

REACTIONS (3)
  - Parkinson^s disease [Unknown]
  - Cerebrovascular accident [Unknown]
  - Eye disorder [Unknown]
